FAERS Safety Report 4989477-0 (Version None)
Quarter: 2006Q2

REPORT INFORMATION
  Report Type: 
  Country: None (occurrence: None)
  Receive Date: 20060502
  Receipt Date: 20050117
  Transmission Date: 20061013
  Serious: Yes (Hospitalization, Disabling)
  Sender: FDA-Public Use
  Company Number: US-MERCK-0501USA03025

PATIENT
  Age: 65 Year
  Sex: Female
  Weight: 86 kg

DRUGS (6)
  1. VIOXX [Suspect]
     Indication: ARTHRALGIA
     Route: 048
     Dates: start: 20010101, end: 20040901
  2. VIOXX [Suspect]
     Route: 048
     Dates: start: 20010101, end: 20040901
  3. ASPIRIN [Concomitant]
     Route: 065
  4. PREVACID [Concomitant]
     Route: 065
  5. LOTREL [Concomitant]
     Route: 065
  6. PREMARIN [Concomitant]
     Route: 065

REACTIONS (9)
  - ARTHRALGIA [None]
  - EAR INFECTION [None]
  - EAR PAIN [None]
  - ENCEPHALOMALACIA [None]
  - FALL [None]
  - HYPERLIPIDAEMIA [None]
  - NASAL DISORDER [None]
  - OTITIS EXTERNA [None]
  - TRANSIENT ISCHAEMIC ATTACK [None]
